FAERS Safety Report 8118284-5 (Version None)
Quarter: 2012Q1

REPORT INFORMATION
  Report Type: 
  Country: None (occurrence: None)
  Receive Date: 20120207
  Receipt Date: 20120124
  Transmission Date: 20120608
  Serious: Yes (Hospitalization)
  Sender: FDA-Public Use
  Company Number: US-RANBAXY-2012US-52199

PATIENT
  Age: 65 Year
  Sex: Male

DRUGS (2)
  1. CITALOPRAM HYDROBROMIDE [Interacting]
     Indication: DEPRESSION
     Dosage: UNK
     Route: 065
  2. CIPROFLOXACIN [Suspect]
     Indication: URINARY TRACT INFECTION
     Dosage: 500 MG, BID
     Route: 065

REACTIONS (5)
  - TORSADE DE POINTES [None]
  - ALTERED STATE OF CONSCIOUSNESS [None]
  - POTENTIATING DRUG INTERACTION [None]
  - SEIZURE LIKE PHENOMENA [None]
  - URINARY TRACT INFECTION [None]
